FAERS Safety Report 11413482 (Version 1)
Quarter: 2015Q3

REPORT INFORMATION
  Report Type: Spontaneous
  Country: US (occurrence: US)
  Receive Date: 20150821
  Receipt Date: 20150821
  Transmission Date: 20151125
  Serious: No
  Sender: FDA-Public Use
  Company Number: US-ELI_LILLY_AND_COMPANY-US201106003240

PATIENT
  Sex: Female

DRUGS (4)
  1. HUMULIN 70/30 [Suspect]
     Active Substance: INSULIN HUMAN
     Dosage: 40 U, EACH EVENING
     Dates: start: 201103
  2. HUMULIN 70/30 [Suspect]
     Active Substance: INSULIN HUMAN
     Dosage: 40 U, EACH MORNING
     Dates: start: 201103
  3. HUMULIN 70/30 [Suspect]
     Active Substance: INSULIN HUMAN
     Dosage: 40 U, EACH EVENING
     Dates: start: 201103
  4. HUMULIN 70/30 [Suspect]
     Active Substance: INSULIN HUMAN
     Dosage: 40 U, EACH MORNING
     Dates: start: 201103

REACTIONS (10)
  - Hypersensitivity [Unknown]
  - Rash [Unknown]
  - Head discomfort [Unknown]
  - Psoriasis [Unknown]
  - Skin discolouration [Unknown]
  - Food allergy [Unknown]
  - Drug hypersensitivity [Unknown]
  - Skin odour abnormal [Unknown]
  - Eczema [Unknown]
  - Pruritus [Unknown]
